FAERS Safety Report 11186316 (Version 12)
Quarter: 2018Q3

REPORT INFORMATION
  Report Type: Spontaneous
  Country: DE (occurrence: DE)
  Receive Date: 20150612
  Receipt Date: 20180912
  Transmission Date: 20181010
  Serious: Yes (Other)
  Sender: FDA-Public Use
  Company Number: PHHY2015DE068443

PATIENT
  Age: 56 Year
  Sex: Male

DRUGS (17)
  1. METHOTREXATE. [Suspect]
     Active Substance: METHOTREXATE
     Indication: PSORIASIS
  2. HUMIRA [Suspect]
     Active Substance: ADALIMUMAB
     Indication: PSORIASIS
  3. ENBREL [Suspect]
     Active Substance: ETANERCEPT
     Indication: PSORIASIS
     Dosage: UNK
     Route: 065
  4. ADALIMUMAB [Suspect]
     Active Substance: ADALIMUMAB
     Indication: PSORIASIS
     Route: 065
  5. CICLOSPORIN [Suspect]
     Active Substance: CYCLOSPORINE
     Indication: MALIGNANT MELANOMA
     Dosage: UNK
     Route: 065
  6. REMICADE [Suspect]
     Active Substance: INFLIXIMAB
     Indication: PSORIASIS
  7. CALCIPOTRIOL [Concomitant]
     Active Substance: CALCIPOTRIENE
     Indication: PRODUCT USED FOR UNKNOWN INDICATION
     Route: 061
  8. CICLOSPORIN [Suspect]
     Active Substance: CYCLOSPORINE
     Indication: PSORIASIS
  9. REMICADE [Suspect]
     Active Substance: INFLIXIMAB
     Indication: PSORIASIS
     Dosage: UNK
     Route: 065
  10. METHOTREXATE. [Suspect]
     Active Substance: METHOTREXATE
     Indication: MALIGNANT MELANOMA
     Route: 065
  11. NEOTIGASON [Suspect]
     Active Substance: ACITRETIN
     Indication: PSORIASIS
  12. HUMIRA [Suspect]
     Active Substance: ADALIMUMAB
     Indication: PSORIASIS
     Route: 065
  13. ENBREL [Suspect]
     Active Substance: ETANERCEPT
     Indication: PSORIASIS
     Dosage: SWITCH TO ENBREL 3 MONTH AFTER START OF TREATMENT WITH HUMIRA
     Route: 065
  14. NEOTIGASON [Suspect]
     Active Substance: ACITRETIN
     Indication: PSORIASIS
     Route: 065
  15. FUMADERM [Suspect]
     Active Substance: CALCIUM MONOETHYLFUMARATE\DIMETHYL FUMARATE\MAGNESIUM MONOETHYLFUMARATE\ZINC MONOETHYLFUMARATE
     Indication: PSORIASIS
     Dosage: UNK
     Route: 065
     Dates: start: 2001, end: 2005
  16. CALCIPOTRIOL [Concomitant]
     Active Substance: CALCIPOTRIENE
     Route: 061
  17. ADALIMUMAB [Suspect]
     Active Substance: ADALIMUMAB
     Indication: PSORIASIS

REACTIONS (9)
  - Drug ineffective [Unknown]
  - Keratoacanthoma [Not Recovered/Not Resolved]
  - Therapy non-responder [Recovered/Resolved]
  - Drug effect incomplete [Unknown]
  - Blood pressure increased [Unknown]
  - Malignant melanoma stage I [Recovered/Resolved]
  - Hyperkeratosis [Unknown]
  - Superficial spreading melanoma stage unspecified [Recovered/Resolved]
  - Malignant melanoma [Recovered/Resolved]

NARRATIVE: CASE EVENT DATE: 200805
